FAERS Safety Report 24280307 (Version 1)
Quarter: 2024Q3

REPORT INFORMATION
  Report Type: Spontaneous
  Country: US (occurrence: US)
  Receive Date: 20240904
  Receipt Date: 20240904
  Transmission Date: 20241017
  Serious: No
  Sender: DR REDDYS
  Company Number: US-DRL-USA-SPO/USA/24/0012652

PATIENT
  Age: 32 Year

DRUGS (1)
  1. ZENATANE [Suspect]
     Active Substance: ISOTRETINOIN
     Indication: Product used for unknown indication
     Dosage: CAPSULES 30 MG - DRLBOX OF 30 (3X10)
     Route: 065

REACTIONS (1)
  - Blood triglycerides abnormal [Unknown]
